FAERS Safety Report 4959098-4 (Version None)
Quarter: 2006Q1

REPORT INFORMATION
  Report Type: 
  Country: None (occurrence: None)
  Receive Date: 20060331
  Receipt Date: 20060321
  Transmission Date: 20060701
  Serious: Yes (Hospitalization)
  Sender: FDA-Public Use
  Company Number: US-JNJFOC-20040206002

PATIENT
  Sex: Male

DRUGS (9)
  1. INFLIXIMAB [Suspect]
     Indication: RHEUMATOID ARTHRITIS
     Route: 042
  2. METHOTREXATE [Concomitant]
  3. FOLIC ACID [Concomitant]
  4. GLUCOVANCE [Concomitant]
  5. GLUCOVANCE [Concomitant]
     Dosage: 4 TABS DAILY
  6. PLAVIX [Concomitant]
  7. ASPIRIN [Concomitant]
  8. TRICOR [Concomitant]
  9. ASCORBIC ACID [Concomitant]

REACTIONS (1)
  - CORONARY ARTERY DISEASE [None]
